FAERS Safety Report 4274500-1 (Version None)
Quarter: 2004Q1

REPORT INFORMATION
  Report Type: 
  Country: None (occurrence: None)
  Receive Date: 20040115
  Receipt Date: 20040105
  Transmission Date: 20041129
  Serious: Yes (Hospitalization)
  Sender: FDA-Public Use
  Company Number: 2003-12-1119

PATIENT
  Age: 64 Year
  Sex: Female
  Weight: 59 kg

DRUGS (3)
  1. TEMODAL [Suspect]
     Indication: GLIOBLASTOMA
     Dosage: 300 MG QD ORAL
     Route: 048
     Dates: start: 20031106, end: 20031114
  2. SOLU-MEDROL [Concomitant]
  3. RADIATION THERAPY FOR GLIOBLASTOMA [Concomitant]

REACTIONS (5)
  - BONE MARROW DEPRESSION [None]
  - COUGH [None]
  - GENERAL PHYSICAL HEALTH DETERIORATION [None]
  - LUNG INFECTION [None]
  - PRODUCTIVE COUGH [None]
